FAERS Safety Report 16021115 (Version 2)
Quarter: 2019Q2

REPORT INFORMATION
  Report Type: Spontaneous
  Country: US (occurrence: US)
  Receive Date: 20190301
  Receipt Date: 20190404
  Transmission Date: 20190711
  Serious: No
  Sender: FDA-Public Use
  Company Number: US-PFIZER INC-2019085714

PATIENT
  Sex: Female

DRUGS (10)
  1. LODINE [Suspect]
     Active Substance: ETODOLAC
     Dosage: 400 MG, UNK
  2. IBUPROFEN. [Suspect]
     Active Substance: IBUPROFEN
     Dosage: 200 MG, UNK
  3. CINNAMON. [Suspect]
     Active Substance: CINNAMON
     Dosage: UNK
  4. MMR [Suspect]
     Active Substance: MEASLES-MUMPS-RUBELLA VIRUS VACCINE
     Dosage: UNK
  5. PENICILLIN V POTASSIUM. [Suspect]
     Active Substance: PENICILLIN V POTASSIUM
     Dosage: UNK
  6. FELDENE [Suspect]
     Active Substance: PIROXICAM
     Dosage: 10 MG, UNK
  7. CLINDAMYCIN HCL [Suspect]
     Active Substance: CLINDAMYCIN HYDROCHLORIDE
     Dosage: 150 MG, UNK
  8. ERYTHROCIN [ERYTHROMYCIN] [Suspect]
     Active Substance: ERYTHROMYCIN
     Dosage: 250 MG, UNK
  9. BACTRIM [Suspect]
     Active Substance: SULFAMETHOXAZOLE\TRIMETHOPRIM
     Dosage: UNK [SULFAMETHOXAZOLE-400 MG/TRIMETHOPRIM-80 MG]
  10. MELOXICAM. [Suspect]
     Active Substance: MELOXICAM
     Dosage: 15 MG, UNK

REACTIONS (1)
  - Drug hypersensitivity [Unknown]
